FAERS Safety Report 10214131 (Version 1)
Quarter: 2014Q2

REPORT INFORMATION
  Report Type: Spontaneous
  Country: ES (occurrence: None)
  Receive Date: 20140530
  Receipt Date: 20140530
  Transmission Date: 20141212
  Serious: Yes (Other)
  Sender: FDA-Public Use
  Company Number: B0997203A

PATIENT
  Age: 42 Year
  Sex: Female

DRUGS (6)
  1. PACLITAXEL [Suspect]
     Indication: OVARIAN CLEAR CELL CARCINOMA
     Dosage: 175 MG/M2 / CYCLIC
  2. RANITIDINE HYDROCHLORIDE [Suspect]
     Indication: OVARIAN CLEAR CELL CARCINOMA
  3. THYROXINE SODIUM [Suspect]
     Indication: GOITRE
  4. CARBOPLATIN [Suspect]
     Indication: OVARIAN CLEAR CELL CARCINOMA
  5. DEXAMETHASONE [Suspect]
     Indication: OVARIAN CLEAR CELL CARCINOMA
  6. GRANISETRON HYDROCHLORIDE [Suspect]
     Indication: OVARIAN CLEAR CELL CARCINOMA

REACTIONS (3)
  - Neurotoxicity [None]
  - Caesarean section [None]
  - Exposure during pregnancy [None]
